FAERS Safety Report 13851171 (Version 1)
Quarter: 2017Q3

REPORT INFORMATION
  Report Type: Other
  Country: FR (occurrence: FR)
  Receive Date: 20170809
  Receipt Date: 20170809
  Transmission Date: 20171127
  Serious: Yes (Death, Hospitalization)
  Sender: FDA-Public Use
  Company Number: FR-CELLTRION HEALTHCARE HUNGARY KFT-2016FR011106

PATIENT

DRUGS (17)
  1. NERISONE [Concomitant]
     Active Substance: DIFLUCORTOLONE VALERATE
  2. CORTANCYL [Suspect]
     Active Substance: PREDNISONE
     Dosage: 20 MG, DAILY
     Route: 048
     Dates: start: 201610, end: 201610
  3. DICLOFENAC [Concomitant]
     Active Substance: DICLOFENAC
     Dosage: UNK
     Dates: end: 20160907
  4. LAMALINE                           /00764901/ [Concomitant]
     Active Substance: ACETAMINOPHEN\BELLADONNA LEAF\CAFFEINE\MORPHINE
  5. AERIUS [Concomitant]
     Active Substance: DESLORATADINE
     Dosage: UNK
     Route: 065
  6. REMSIMA [Suspect]
     Active Substance: INFLIXIMAB
     Indication: ANKYLOSING SPONDYLITIS
     Dosage: UNK UNK, CYCLIC
     Route: 042
     Dates: start: 20160629, end: 20160629
  7. PARACETAMOL [Concomitant]
     Active Substance: ACETAMINOPHEN
     Dosage: UNK
     Dates: end: 20160907
  8. LEVOTHYROXINE SODIUM. [Concomitant]
     Active Substance: LEVOTHYROXINE SODIUM
     Dosage: 125 ?G, UNK
     Route: 065
  9. ESOMEPRAZOLE [Concomitant]
     Active Substance: ESOMEPRAZOLE
     Dosage: UNK
     Dates: end: 20160907
  10. CORTANCYL [Suspect]
     Active Substance: PREDNISONE
     Dosage: 30 MG, DAILY
     Route: 048
     Dates: start: 20161008, end: 20161008
  11. REMSIMA [Suspect]
     Active Substance: INFLIXIMAB
     Dosage: UNK UNK, CYCLIC
     Route: 042
     Dates: start: 20160727, end: 20160727
  12. SERETIDE [Suspect]
     Active Substance: FLUTICASONE PROPIONATE\SALMETEROL XINAFOATE
     Indication: ASTHMA
     Dosage: UNK
     Route: 055
  13. ZYMAD [Concomitant]
     Active Substance: CHOLECALCIFEROL
     Dosage: 1 DF, EVERY 6 MONTHS
  14. MOXYDAR [Concomitant]
     Active Substance: ALUMINUM HYDROXIDE\ALUMINUM PHOSPHATE\GUAR GUM\MAGNESIUM HYDROXIDE
  15. REMSIMA [Suspect]
     Active Substance: INFLIXIMAB
     Indication: SPONDYLOARTHROPATHY
     Dosage: UNK UNK, CYCLIC
     Route: 042
     Dates: start: 20160615, end: 20160615
  16. CORTANCYL [Suspect]
     Active Substance: PREDNISONE
     Indication: HEPATITIS
     Dosage: 40 MG, DAILY
     Route: 048
     Dates: start: 20161008, end: 20161008
  17. PERINDOPRIL [Concomitant]
     Active Substance: PERINDOPRIL
     Dosage: UNK
     Dates: end: 20160907

REACTIONS (6)
  - Pneumocystis jirovecii pneumonia [Fatal]
  - Hepatitis [Recovering/Resolving]
  - Renal disorder [Fatal]
  - Oedema peripheral [Not Recovered/Not Resolved]
  - Septic shock [Fatal]
  - Liver disorder [Fatal]

NARRATIVE: CASE EVENT DATE: 20160905
